FAERS Safety Report 7239337-X (Version None)
Quarter: 2011Q1

REPORT INFORMATION
  Report Type: 
  Country: None (occurrence: None)
  Receive Date: 20110113
  Receipt Date: 20110104
  Transmission Date: 20110831
  Serious: Yes (Other)
  Sender: FDA-Public Use
  Company Number: 2011SP000567

PATIENT
  Sex: Female

DRUGS (1)
  1. IMPLANON [Suspect]
     Indication: PRODUCT USED FOR UNKNOWN INDICATION
     Dates: start: 20091119

REACTIONS (4)
  - LOSS OF CONSCIOUSNESS [None]
  - DECREASED APPETITE [None]
  - HEADACHE [None]
  - HAEMORRHAGE [None]
